FAERS Safety Report 16687893 (Version 1)
Quarter: 2019Q4

REPORT INFORMATION
  Report Type: Spontaneous
  Country: US (occurrence: US)
  Receive Date: 20190808
  Receipt Date: 20190808
  Transmission Date: 20200122
  Serious: Yes (Death)
  Sender: FDA-Public Use
  Company Number: None

PATIENT
  Sex: Male

DRUGS (16)
  1. BICALUTAMIDE. [Suspect]
     Active Substance: BICALUTAMIDE
     Indication: PROSTATE CANCER
     Route: 048
     Dates: start: 20190514
  2. COUMADIN [Concomitant]
     Active Substance: WARFARIN SODIUM
  3. HYDRALAZINE [Concomitant]
     Active Substance: HYDRALAZINE HYDROCHLORIDE
  4. CALCITRIOL. [Concomitant]
     Active Substance: CALCITRIOL
  5. LOSARTAN. [Concomitant]
     Active Substance: LOSARTAN
  6. VIT D [Concomitant]
     Active Substance: VITAMIN D NOS
  7. ALLOPURINOL. [Concomitant]
     Active Substance: ALLOPURINOL
  8. LACTAID [Concomitant]
     Active Substance: LACTASE
  9. CEPHALEXIN. [Concomitant]
     Active Substance: CEPHALEXIN
  10. EFUDEX [Concomitant]
     Active Substance: FLUOROURACIL
  11. HYDROCORTISONE. [Concomitant]
     Active Substance: HYDROCORTISONE
  12. METRONIDAZOLE. [Concomitant]
     Active Substance: METRONIDAZOLE
  13. NEXIUM [Concomitant]
     Active Substance: ESOMEPRAZOLE MAGNESIUM
  14. TUMS [Concomitant]
     Active Substance: CALCIUM CARBONATE
  15. COZAAR [Concomitant]
     Active Substance: LOSARTAN POTASSIUM
  16. POTASSIUM CL ER [Concomitant]
     Active Substance: POTASSIUM CHLORIDE

REACTIONS (1)
  - Death [None]
